FAERS Safety Report 9962994 (Version 1)
Quarter: 2014Q1

REPORT INFORMATION
  Report Type: Spontaneous
  Country: DE (occurrence: DE)
  Receive Date: 20140305
  Receipt Date: 20140305
  Transmission Date: 20141002
  Serious: Yes (Congenital Anomaly, Other)
  Sender: FDA-Public Use
  Company Number: DE-TEVA-465497GER

PATIENT
  Age: 1 Day
  Sex: Male

DRUGS (5)
  1. PAROXETIN [Suspect]
     Route: 064
  2. THYROXIN [Concomitant]
     Route: 064
  3. ESOMEPRAZOLE [Concomitant]
     Route: 064
  4. FOLIO [Concomitant]
     Route: 064
  5. IMPFSTOFF GRIPPE (SAISONALE) [Concomitant]
     Route: 064

REACTIONS (3)
  - Pulmonary valve stenosis congenital [Not Recovered/Not Resolved]
  - Feeding disorder neonatal [Recovered/Resolved]
  - Atrial septal defect [Recovering/Resolving]
